FAERS Safety Report 12183110 (Version 1)
Quarter: 2016Q1

REPORT INFORMATION
  Report Type: Spontaneous
  Country: US (occurrence: None)
  Receive Date: 20160315
  Receipt Date: 20160315
  Transmission Date: 20160526
  Serious: Yes (Disabling)
  Sender: FDA-Public Use
  Company Number: None

PATIENT
  Age: 62 Year
  Sex: Female
  Weight: 92.08 kg

DRUGS (4)
  1. ATORVASTATIN CALCIUM. [Concomitant]
     Active Substance: ATORVASTATIN CALCIUM
  2. VITAFUSION HAIRM SKIN AND NAILS WITH BIOTIN CHEWABLES [Concomitant]
  3. VITAFUSION VITAMIN D [Concomitant]
  4. LEVOFLOXACIN 500 MG AUROBINDO [Suspect]
     Active Substance: LEVOFLOXACIN
     Indication: PNEUMONIA
     Route: 048
     Dates: start: 20160219, end: 20160226

REACTIONS (7)
  - Arthritis [None]
  - Abasia [None]
  - Erythema [None]
  - Peripheral swelling [None]
  - Pain [None]
  - Burning sensation [None]
  - Sleep disorder due to general medical condition, hypersomnia type [None]

NARRATIVE: CASE EVENT DATE: 20160219
